FAERS Safety Report 10475321 (Version 1)
Quarter: 2014Q3

REPORT INFORMATION
  Report Type: Spontaneous
  Country: US (occurrence: US)
  Receive Date: 20140925
  Receipt Date: 20140925
  Transmission Date: 20150326
  Serious: No
  Sender: FDA-Public Use
  Company Number: US-VIIV HEALTHCARE LIMITED-A1050452A

PATIENT
  Sex: Male

DRUGS (6)
  1. SELZENTRY [Suspect]
     Active Substance: MARAVIROC
     Indication: HIV INFECTION
     Dosage: 150MG UNKNOWN
     Route: 048
  2. RITALIN [Concomitant]
     Active Substance: METHYLPHENIDATE HYDROCHLORIDE
  3. FLOMAX [Concomitant]
     Active Substance: TAMSULOSIN HYDROCHLORIDE
  4. ATAZANAVIR [Concomitant]
     Active Substance: ATAZANAVIR
  5. NORVIR [Concomitant]
     Active Substance: RITONAVIR
  6. CIALIS [Concomitant]
     Active Substance: TADALAFIL

REACTIONS (1)
  - Ejaculation failure [Unknown]
